FAERS Safety Report 15262167 (Version 1)
Quarter: 2018Q3

REPORT INFORMATION
  Report Type: Other
  Country: CA (occurrence: CA)
  Receive Date: 20180809
  Receipt Date: 20180809
  Transmission Date: 20181010
  Serious: Yes (Other)
  Sender: FDA-Public Use
  Company Number: CA-HQ SPECIALTY-CA-2018INT000143

PATIENT

DRUGS (10)
  1. MIDAZOLAM [Suspect]
     Active Substance: MIDAZOLAM HYDROCHLORIDE
     Indication: INDUCTION OF ANAESTHESIA
     Dosage: UNK
     Route: 065
  2. PROPOFOL. [Suspect]
     Active Substance: PROPOFOL
     Indication: PERIPHERAL NERVE TRANSPOSITION
     Dosage: 200 MG, UNK
     Route: 065
  3. SEVOFLURANE. [Suspect]
     Active Substance: SEVOFLURANE
     Indication: INDUCTION OF ANAESTHESIA
  4. FENTANYL CITRATE. [Suspect]
     Active Substance: FENTANYL CITRATE
     Indication: INDUCTION OF ANAESTHESIA
  5. PROPOFOL. [Suspect]
     Active Substance: PROPOFOL
     Indication: INDUCTION OF ANAESTHESIA
  6. FENTANYL CITRATE. [Suspect]
     Active Substance: FENTANYL CITRATE
     Indication: PERIPHERAL NERVE TRANSPOSITION
     Dosage: 200 ?G, UNK
     Route: 065
  7. DEXMEDETOMIDINE HYDROCHLORIDE. [Suspect]
     Active Substance: DEXMEDETOMIDINE HYDROCHLORIDE
     Indication: INDUCTION OF ANAESTHESIA
     Dosage: TOTAL
     Route: 041
  8. SEVOFLURANE. [Suspect]
     Active Substance: SEVOFLURANE
     Indication: PERIPHERAL NERVE TRANSPOSITION
     Dosage: 60 MG, UNK
     Route: 065
  9. DEXMEDETOMIDINE HYDROCHLORIDE. [Suspect]
     Active Substance: DEXMEDETOMIDINE HYDROCHLORIDE
     Indication: PERIPHERAL NERVE TRANSPOSITION
     Dosage: 44 ?G, UNK
     Route: 065
  10. MIDAZOLAM [Suspect]
     Active Substance: MIDAZOLAM HYDROCHLORIDE
     Indication: PERIPHERAL NERVE TRANSPOSITION
     Dosage: 2 MG, UNK
     Route: 042

REACTIONS (6)
  - Tachycardia [Unknown]
  - Seizure like phenomena [Unknown]
  - Nausea [Unknown]
  - Tachypnoea [Unknown]
  - Product use in unapproved indication [Unknown]
  - Dyskinesia [Unknown]
